FAERS Safety Report 12994014 (Version 2)
Quarter: 2017Q1

REPORT INFORMATION
  Report Type: Spontaneous
  Country: US (occurrence: US)
  Receive Date: 20161202
  Receipt Date: 20170116
  Transmission Date: 20170428
  Serious: No
  Sender: FDA-Public Use
  Company Number: US-JNJFOC-20161110408

PATIENT
  Age: 71 Year
  Sex: Male

DRUGS (1)
  1. RISPERDAL CONSTA [Suspect]
     Active Substance: RISPERIDONE
     Indication: PRODUCT USED FOR UNKNOWN INDICATION
     Route: 030
     Dates: start: 20100201

REACTIONS (4)
  - Device malfunction [Unknown]
  - Device breakage [Unknown]
  - Inappropriate schedule of drug administration [Unknown]
  - Off label use [Unknown]

NARRATIVE: CASE EVENT DATE: 20100201
